FAERS Safety Report 6976832-2 (Version None)
Quarter: 2010Q3

REPORT INFORMATION
  Report Type: 
  Country: None (occurrence: None)
  Receive Date: 20100910
  Receipt Date: 20100826
  Transmission Date: 20110219
  Serious: Yes (Hospitalization)
  Sender: FDA-Public Use
  Company Number: A0879984A

PATIENT
  Age: 15 Year
  Sex: Female
  Weight: 34.4 kg

DRUGS (1)
  1. PAZOPANIB [Suspect]
     Indication: NEOPLASM
     Dosage: 450MGM2 PER DAY
     Route: 048
     Dates: start: 20100428

REACTIONS (9)
  - ABDOMINAL PAIN [None]
  - ANAEMIA [None]
  - HAEMORRHAGE [None]
  - HYPOALBUMINAEMIA [None]
  - INFECTION [None]
  - MYALGIA [None]
  - PERIODONTAL DISEASE [None]
  - PYREXIA [None]
  - WOUND SECRETION [None]
